FAERS Safety Report 4362871-7 (Version None)
Quarter: 2004Q2

REPORT INFORMATION
  Report Type: 
  Country: None (occurrence: None)
  Receive Date: 20040517
  Receipt Date: 20040322
  Transmission Date: 20050107
  Serious: No
  Sender: FDA-Public Use
  Company Number: S04-USA-01838-01

PATIENT
  Age: 77 Year
  Sex: Female

DRUGS (2)
  1. NAMENDA [Suspect]
     Indication: DEMENTIA
     Dates: start: 20040301
  2. REMINYL [Concomitant]

REACTIONS (2)
  - FATIGUE [None]
  - THINKING ABNORMAL [None]
